FAERS Safety Report 9575789 (Version 1)
Quarter: 2013Q4

REPORT INFORMATION
  Report Type: Spontaneous
  Country: US (occurrence: US)
  Receive Date: 20131001
  Receipt Date: 20131001
  Transmission Date: 20140711
  Serious: No
  Sender: FDA-Public Use
  Company Number: US-AMGEN-USASP2013000026

PATIENT
  Age: 52 Year
  Sex: Female
  Weight: 86.17 kg

DRUGS (7)
  1. ENBREL [Suspect]
     Indication: ARTHRITIS
     Dosage: 50 MG, QWK
     Route: 058
  2. ENBREL [Suspect]
     Indication: PSORIASIS
  3. METHOTREXATE [Concomitant]
     Dosage: 25 MG/ML, UNK
  4. NASACORT AQ [Concomitant]
     Dosage: 55 MCG/AC
  5. IBUPROFEN [Concomitant]
     Dosage: 800 MG, UNK
  6. FOLIC ACID [Concomitant]
     Dosage: 1 MG, UNK
  7. NEXIUM                             /01479302/ [Concomitant]
     Dosage: 40 MG, UNK

REACTIONS (1)
  - Skin lesion [Unknown]
